FAERS Safety Report 5281138-6 (Version None)
Quarter: 2007Q1

REPORT INFORMATION
  Report Type: 
  Country: None (occurrence: None)
  Receive Date: 20070323
  Receipt Date: 20070307
  Transmission Date: 20070707
  Serious: Yes (Hospitalization, Other)
  Sender: FDA-Public Use
  Company Number: 15865

PATIENT
  Age: 36 Year
  Sex: Female
  Weight: 54 kg

DRUGS (3)
  1. FLUOROURACIL [Suspect]
     Indication: COLORECTAL CANCER
     Dosage: 3675 MG OTH PU
     Route: 050
     Dates: start: 20070301, end: 20070303
  2. FLUOROURACIL [Suspect]
     Indication: COLORECTAL CANCER
     Dosage: 610 G ONCE IV
     Route: 042
     Dates: start: 20070301, end: 20070301
  3. FOLINIC ACID [Suspect]
     Indication: COLORECTAL CANCER
     Dosage: 610 G ONCE IV
     Route: 042
     Dates: start: 20070301, end: 20070301

REACTIONS (6)
  - BLOOD GLUCOSE INCREASED [None]
  - BLOOD POTASSIUM DECREASED [None]
  - BLOOD UREA INCREASED [None]
  - BLOOD URIC ACID INCREASED [None]
  - ENCEPHALOPATHY [None]
  - MUSCULAR WEAKNESS [None]
